FAERS Safety Report 7779222-8 (Version None)
Quarter: 2011Q3

REPORT INFORMATION
  Report Type: 
  Country: None (occurrence: None)
  Receive Date: 20110926
  Receipt Date: 20110919
  Transmission Date: 20111222
  Serious: Yes (Other)
  Sender: FDA-Public Use
  Company Number: CN-ASTRAZENECA-2011SE54594

PATIENT
  Age: 68 Year
  Sex: Female
  Weight: 82 kg

DRUGS (2)
  1. NEXIUM [Suspect]
     Indication: HELICOBACTER INFECTION
     Route: 048
     Dates: start: 20110901, end: 20110913
  2. NEXIUM [Suspect]
     Dosage: LOW-DOSE
     Route: 048

REACTIONS (6)
  - OEDEMA PERIPHERAL [None]
  - VISION BLURRED [None]
  - HAEMATOCHEZIA [None]
  - MELAENA [None]
  - PALPITATIONS [None]
  - ARTHRALGIA [None]
